FAERS Safety Report 6916395-0 (Version None)
Quarter: 2010Q3

REPORT INFORMATION
  Report Type: 
  Country: None (occurrence: None)
  Receive Date: 20100804
  Receipt Date: 20100722
  Transmission Date: 20110219
  Serious: Yes (Hospitalization)
  Sender: FDA-Public Use
  Company Number: 1000014253

PATIENT
  Age: 63 Year
  Sex: Female

DRUGS (5)
  1. CITALOPRAM HYDROBROMIDE [Suspect]
     Indication: BIPOLAR DISORDER
     Dosage: 20MG (20MG, 1 IN 1D), INTRAVENOUS
     Route: 042
     Dates: start: 20100309
  2. CITALOPRAM HYDROBROMIDE [Suspect]
     Indication: BIPOLAR DISORDER
     Dosage: 40MG (40MG, 1 IN 1 D), ORAL
     Route: 048
     Dates: end: 20100329
  3. LEXOMIL [Concomitant]
  4. STILNOX [Concomitant]
  5. TERALITHE [Concomitant]

REACTIONS (4)
  - COGNITIVE DISORDER [None]
  - CONFUSIONAL STATE [None]
  - DISORIENTATION [None]
  - NERVOUS SYSTEM DISORDER [None]
